FAERS Safety Report 24379362 (Version 2)
Quarter: 2024Q4

REPORT INFORMATION
  Report Type: Spontaneous
  Country: FR (occurrence: FR)
  Receive Date: 20240930
  Receipt Date: 20241118
  Transmission Date: 20250115
  Serious: Yes (Hospitalization)
  Sender: MYLAN
  Company Number: None

PATIENT
  Age: 68 Year
  Sex: Female
  Weight: 86 kg

DRUGS (6)
  1. ATORVASTATIN [Interacting]
     Active Substance: ATORVASTATIN
     Indication: Product used for unknown indication
     Dosage: 80 MILLIGRAM (80 MG ATORVASTATINE)
     Route: 048
     Dates: start: 20191201, end: 20240902
  2. VOTRIENT [Interacting]
     Active Substance: PAZOPANIB HYDROCHLORIDE
     Indication: Renal cancer
     Dosage: 400 MILLIGRAM, QD (400 MG/D)
     Route: 048
     Dates: start: 20240618, end: 20240814
  3. VOTRIENT [Interacting]
     Active Substance: PAZOPANIB HYDROCHLORIDE
     Dosage: 800 MILLIGRAM, QD (800 MG/D)
     Route: 048
     Dates: start: 20240801, end: 20240814
  4. CANDESARTAN CILEXETIL [Concomitant]
     Active Substance: CANDESARTAN CILEXETIL
     Dosage: 16 MILLIGRAM (FORMULATION: SCORED TABLET)
     Route: 048
     Dates: start: 20191201
  5. BISOPROLOL [Concomitant]
     Active Substance: BISOPROLOL
     Dosage: 2.5 MILLIGRAM, QD (2.5 MG/D) (FORMULATION: SCORED FILM-COATED TABLET)
     Route: 048
     Dates: start: 20191201
  6. PAROXETINE HYDROCHLORIDE [Concomitant]
     Active Substance: PAROXETINE HYDROCHLORIDE
     Dosage: 20 MILLIGRAM (FORMULATION: SCORED FILM-COATED TABLET)
     Route: 048
     Dates: start: 20231001

REACTIONS (5)
  - Hepatic cytolysis [Recovered/Resolved]
  - Rhabdomyolysis [Recovered/Resolved]
  - Cholestasis [Recovering/Resolving]
  - Blood bilirubin increased [Recovered/Resolved]
  - Drug interaction [Unknown]

NARRATIVE: CASE EVENT DATE: 20240813
